FAERS Safety Report 8152734-3 (Version None)
Quarter: 2012Q1

REPORT INFORMATION
  Report Type: 
  Country: None (occurrence: None)
  Receive Date: 20120221
  Receipt Date: 20120213
  Transmission Date: 20120608
  Serious: Yes (Hospitalization)
  Sender: FDA-Public Use
  Company Number: US-JNJFOC-2006017246

PATIENT
  Sex: Male
  Weight: 36.29 kg

DRUGS (4)
  1. ACCUHIST LA [Concomitant]
     Indication: UPPER RESPIRATORY TRACT CONGESTION
     Dosage: DAILY DOSE TEXT: UNSPECIFIED
     Route: 065
     Dates: start: 20060131
  2. MOTRIN [Suspect]
     Indication: PRODUCT USED FOR UNKNOWN INDICATION
     Dosage: DAILY DOSE TEXT: UNSPECIFIED
     Route: 048
  3. BENADRYL [Suspect]
     Indication: HYPERSENSITIVITY
     Dosage: DAILY DOSE TEXT: UNSPECIFIED DOSE ONCE A DAY
     Route: 048
     Dates: start: 20060202, end: 20060204
  4. MULTI-VITAMINS [Concomitant]
     Dosage: DAILY DOSE TEXT: UNSPECIFIED
     Route: 048

REACTIONS (5)
  - ABASIA [None]
  - MYDRIASIS [None]
  - PYREXIA [None]
  - LOGORRHOEA [None]
  - HALLUCINATION [None]
